FAERS Safety Report 8325401 (Version 8)
Quarter: 2012Q4

REPORT INFORMATION
  Report Type: 
  Country: US (occurrence: US)
  Receive Date: 20120106
  Receipt Date: 20120905
  Transmission Date: 20130627
  Serious: Yes (Other)
  Sender: FDA-Public Use
  Company Number: US-ALEXION-A201200013

PATIENT
  Age: 71 Year
  Sex: Male
  Weight: 76 kg

DRUGS (11)
  1. SOLIRIS 300MG [Suspect]
     Indication: PAROXYSMAL NOCTURNAL HAEMOGLOBINURIA
     Dosage: 900 mg, q2w
     Route: 042
     Dates: start: 20070831
  2. IRON W/FOLIC ACID [Concomitant]
     Dosage: UNK
  3. PREDNISONE [Concomitant]
     Dosage: 10 mg, bid
     Route: 048
  4. PREDNISONE [Concomitant]
     Dosage: 20 mg, qd
     Route: 048
  5. RESTORIL [Concomitant]
     Dosage: 30 mg, UNK
  6. PRILOSEC [Concomitant]
     Dosage: 40 mg, UNK
  7. DRISDOL [Concomitant]
     Dosage: 5000 Iu, UNK
  8. CARTIA XT [Concomitant]
     Dosage: 180 mg, UNK
  9. LANTUS [Concomitant]
     Dosage: UNK
  10. REGLAN [Concomitant]
     Indication: NAUSEA
     Dosage: 10 mg, qid
     Route: 048
     Dates: start: 20120525
  11. REGLAN [Concomitant]
     Indication: DYSPEPSIA

REACTIONS (4)
  - Benign pancreatic neoplasm [Not Recovered/Not Resolved]
  - Pneumobilia [Not Recovered/Not Resolved]
  - Hepatic cyst [Not Recovered/Not Resolved]
  - Weight decreased [Unknown]
